FAERS Safety Report 19185579 (Version 1)
Quarter: 2021Q2

REPORT INFORMATION
  Report Type: Spontaneous
  Country: US (occurrence: US)
  Receive Date: 20210427
  Receipt Date: 20210427
  Transmission Date: 20210717
  Serious: No
  Sender: FDA-Public Use
  Company Number: US-CONCORD BIOTECH LIMITED-CBL202104-000193

PATIENT
  Sex: Female

DRUGS (2)
  1. MYCOPHENOLATE MOFETIL 250 MG CAPSULE [Suspect]
     Active Substance: MYCOPHENOLATE MOFETIL
     Indication: IMMUNOSUPPRESSION
     Dosage: 2 CAPSULES TWICE A DAY
     Dates: start: 2021
  2. TACROLIMUS. [Concomitant]
     Active Substance: TACROLIMUS
     Indication: IMMUNOSUPPRESSION

REACTIONS (1)
  - Gastrointestinal disorder [Unknown]
